FAERS Safety Report 9527508 (Version 1)
Quarter: 2013Q1

REPORT INFORMATION
  Report Type: Spontaneous
  Country: US (occurrence: None)
  Receive Date: 20130314
  Receipt Date: 20130314
  Transmission Date: 20140127
  Serious: No
  Sender: FDA-Public Use
  Company Number: 1211USA005393

PATIENT
  Age: 47 Year
  Sex: Male
  Weight: 113.4 kg

DRUGS (3)
  1. PEGINTRON (PEGINTERFERON ALFA-2B) POWDER FOR INJECTION [Suspect]
     Indication: HEPATITIS C
     Dates: start: 20121109
  2. RIBAVIRIN (RIBAVIRIN) TABLET, 200 MG [Suspect]
     Indication: HEPATITIS C
     Route: 048
     Dates: start: 20121109
  3. VICTRELIS (BOCEPREVIR) CAPSULE [Suspect]
     Indication: HEPATITIS C
     Route: 048
     Dates: start: 20121214

REACTIONS (11)
  - Dysgeusia [None]
  - Feeling cold [None]
  - Heart rate irregular [None]
  - Dyspnoea [None]
  - Fluid intake reduced [None]
  - Injection site warmth [None]
  - Injection site erythema [None]
  - Abdominal pain [None]
  - Malaise [None]
  - Malaise [None]
  - Pyrexia [None]
